FAERS Safety Report 4833754-0 (Version None)
Quarter: 2005Q4

REPORT INFORMATION
  Report Type: 
  Country: None (occurrence: None)
  Receive Date: 20051118
  Receipt Date: 20051107
  Transmission Date: 20060501
  Serious: Yes (Death)
  Sender: FDA-Public Use
  Company Number: 2005-DE-04742GD

PATIENT
  Age: 28 Year

DRUGS (3)
  1. PARACETAMOL (PARACETAMOL) [Suspect]
     Dosage: SEE TEXT
  2. COCAINE (COCAINE) [Suspect]
     Dosage: SEE TEXT
  3. DIPHENHYDRAMINE HCL [Suspect]
     Dosage: SEE TEXT

REACTIONS (1)
  - INTENTIONAL DRUG MISUSE [None]
